FAERS Safety Report 16885551 (Version 1)
Quarter: 2019Q4

REPORT INFORMATION
  Report Type: Spontaneous
  Country: US (occurrence: US)
  Receive Date: 20190809
  Receipt Date: 20190809
  Transmission Date: 20200122
  Serious: No
  Sender: FDA-Public Use
  Company Number: None

PATIENT
  Age: 66 Year
  Sex: Male

DRUGS (1)
  1. TAFINLAR [Suspect]
     Active Substance: DABRAFENIB MESYLATE
     Dates: start: 201908

REACTIONS (3)
  - Product dose omission [None]
  - Pyrexia [None]
  - Chills [None]

NARRATIVE: CASE EVENT DATE: 20190809
